FAERS Safety Report 15684749 (Version 2)
Quarter: 2018Q4

REPORT INFORMATION
  Report Type: Report from Study
  Country: US (occurrence: US)
  Receive Date: 20181204
  Receipt Date: 20181226
  Transmission Date: 20190205
  Serious: No
  Sender: FDA-Public Use
  Company Number: PHEH2018US049888

PATIENT
  Sex: Female

DRUGS (8)
  1. COSENTYX [Suspect]
     Active Substance: SECUKINUMAB
     Dosage: 150 UNK, UNK
     Route: 058
     Dates: start: 20181101
  2. COSENTYX [Suspect]
     Active Substance: SECUKINUMAB
     Dosage: 150 MG, UNK
     Route: 058
     Dates: start: 20181025
  3. COSENTYX [Suspect]
     Active Substance: SECUKINUMAB
     Dosage: UNK
     Route: 065
  4. COSENTYX [Suspect]
     Active Substance: SECUKINUMAB
     Dosage: UNK
     Route: 065
  5. COSENTYX [Suspect]
     Active Substance: SECUKINUMAB
     Dosage: UNK
     Route: 065
  6. COSENTYX [Suspect]
     Active Substance: SECUKINUMAB
     Indication: PSORIASIS
     Dosage: 300 MG, QW
     Route: 058
     Dates: start: 20181018
  7. COSENTYX [Suspect]
     Active Substance: SECUKINUMAB
     Dosage: 300 MG, QW
     Route: 058
     Dates: start: 20181127
  8. COSENTYX [Suspect]
     Active Substance: SECUKINUMAB
     Dosage: UNK
     Route: 065

REACTIONS (3)
  - Incorrect dose administered [Unknown]
  - Gastrooesophageal reflux disease [Unknown]
  - Psoriasis [Unknown]
